FAERS Safety Report 9461602 (Version 1)
Quarter: 2013Q3

REPORT INFORMATION
  Report Type: Spontaneous
  Country: SG (occurrence: SG)
  Receive Date: 20130816
  Receipt Date: 20130816
  Transmission Date: 20140515
  Serious: Yes (Hospitalization)
  Sender: FDA-Public Use
  Company Number: SG-MYLANLABS-2013S1017385

PATIENT
  Age: 59 Year
  Sex: Female

DRUGS (3)
  1. CHLORPROMAZINE [Suspect]
     Indication: SCHIZOPHRENIA
     Dosage: 100MG DAILY, THEN GRADUALLY INCREASED TO 600 MG/DAY
     Route: 048
  2. CHLORPROMAZINE [Suspect]
     Indication: SCHIZOPHRENIA
     Dosage: 600 MG/DAY
     Route: 048
  3. FLUPHENAZINE [Suspect]
     Indication: SCHIZOPHRENIA
     Dosage: 30MG ONCE EVERY 2-4 WEEKS
     Route: 030

REACTIONS (2)
  - Tardive dyskinesia [Recovering/Resolving]
  - Tourette^s disorder [Recovering/Resolving]
